FAERS Safety Report 25416795 (Version 1)
Quarter: 2025Q2

REPORT INFORMATION
  Report Type: Spontaneous
  Country: US (occurrence: US)
  Receive Date: 20250610
  Receipt Date: 20250610
  Transmission Date: 20250717
  Serious: No
  Sender: ELI LILLY AND COMPANY
  Company Number: US-ELI_LILLY_AND_COMPANY-US202506006596

PATIENT
  Age: 38 Year
  Sex: Female

DRUGS (1)
  1. TALTZ [Suspect]
     Active Substance: IXEKIZUMAB
     Indication: Prophylaxis
     Dosage: 80 MG, MONTHLY (1/M) (EVERY 4 WEEKS)
     Route: 058

REACTIONS (3)
  - Joint swelling [Unknown]
  - Arthralgia [Unknown]
  - Off label use [Unknown]
